FAERS Safety Report 26159015 (Version 1)
Quarter: 2025Q4

REPORT INFORMATION
  Report Type: Report from Study
  Country: QA (occurrence: QA)
  Receive Date: 20251215
  Receipt Date: 20251215
  Transmission Date: 20260118
  Serious: Yes (Other)
  Sender: JOHNSON AND JOHNSON
  Company Number: QA-JNJFOC-20251212427

PATIENT
  Age: 38 Year
  Sex: Male

DRUGS (1)
  1. SIMPONI [Suspect]
     Active Substance: GOLIMUMAB
     Indication: Ankylosing spondylitis

REACTIONS (8)
  - Cervical vertebral fracture [Unknown]
  - Thoracic vertebral fracture [Unknown]
  - Cervical spinal stenosis [Unknown]
  - Fall [Unknown]
  - Intervertebral disc degeneration [Unknown]
  - Muscle contusion [Unknown]
  - Osteopenia [Unknown]
  - Spinal osteoarthritis [Unknown]

NARRATIVE: CASE EVENT DATE: 20251001
